FAERS Safety Report 13721283 (Version 1)
Quarter: 2017Q3

REPORT INFORMATION
  Report Type: Spontaneous
  Country: US (occurrence: US)
  Receive Date: 20170706
  Receipt Date: 20170706
  Transmission Date: 20171127
  Serious: No
  Sender: FDA-Public Use
  Company Number: None

PATIENT
  Age: 75 Year
  Sex: Male
  Weight: 96.7 kg

DRUGS (3)
  1. CLINDAMYCIN. [Suspect]
     Active Substance: CLINDAMYCIN
     Indication: CARBUNCLE
     Dosage: 3 CAPS 3 TIMES DAILY MOUTH
     Route: 048
     Dates: start: 20170417, end: 20170427
  2. METRONIDAZODLE [Concomitant]
  3. VANCOMYCIN [Concomitant]
     Active Substance: VANCOMYCIN

REACTIONS (2)
  - Clostridium difficile colitis [None]
  - Weight decreased [None]
